FAERS Safety Report 7819937-6 (Version None)
Quarter: 2011Q4

REPORT INFORMATION
  Report Type: 
  Country: None (occurrence: None)
  Receive Date: 20111018
  Receipt Date: 20100714
  Transmission Date: 20120403
  Serious: No
  Sender: FDA-Public Use
  Company Number: US-ASTRAZENECA-2010SE33135

PATIENT
  Age: 48 Year
  Sex: Female

DRUGS (4)
  1. VENTOLIN [Concomitant]
  2. SYMBICORT [Suspect]
     Indication: CHRONIC OBSTRUCTIVE PULMONARY DISEASE
     Dosage: 320/9 MCG, QID
     Route: 055
     Dates: start: 20100101
  3. COMBIVENT [Concomitant]
  4. PROAIR HFA [Concomitant]

REACTIONS (4)
  - DRUG DOSE OMISSION [None]
  - DYSPNOEA [None]
  - JOINT SWELLING [None]
  - OEDEMA PERIPHERAL [None]
